FAERS Safety Report 7985929-X (Version None)
Quarter: 2011Q4

REPORT INFORMATION
  Report Type: 
  Country: None (occurrence: None)
  Receive Date: 20111216
  Receipt Date: 20111208
  Transmission Date: 20120403
  Serious: Yes (Hospitalization)
  Sender: FDA-Public Use
  Company Number: CA-ABBOTT-11P-028-0848641-00

PATIENT
  Sex: Female

DRUGS (3)
  1. DICLOFENAC SODIUM [Suspect]
     Indication: PRODUCT USED FOR UNKNOWN INDICATION
  2. HUMIRA [Suspect]
     Indication: PSORIASIS
     Route: 058
     Dates: start: 20090321, end: 20110801
  3. HUMIRA [Suspect]
     Route: 058
     Dates: start: 20110101

REACTIONS (4)
  - FATIGUE [None]
  - ANAEMIA [None]
  - HYPOTENSION [None]
  - RENAL FAILURE [None]
